FAERS Safety Report 11131476 (Version 1)
Quarter: 2015Q2

REPORT INFORMATION
  Report Type: Spontaneous
  Country: US (occurrence: US)
  Receive Date: 20150522
  Receipt Date: 20150522
  Transmission Date: 20150821
  Serious: No
  Sender: FDA-Public Use
  Company Number: US-MALLINCKRODT-QSC-2014-0355

PATIENT
  Age: 70 Year
  Sex: Female
  Weight: 77.98 kg

DRUGS (3)
  1. TEA, GREEN [Concomitant]
     Active Substance: GREEN TEA LEAF
     Dosage: UNK
  2. H.P. ACTHAR [Suspect]
     Active Substance: CORTICOTROPIN
     Indication: MULTIPLE SCLEROSIS
     Dosage: 80 UNITS, QOD
     Route: 058
     Dates: start: 20140522, end: 20140528
  3. LEVEMIR [Concomitant]
     Active Substance: INSULIN DETEMIR
     Dosage: UNK

REACTIONS (4)
  - Swelling face [Recovering/Resolving]
  - Blood glucose increased [Recovering/Resolving]
  - Pain in extremity [Recovering/Resolving]
  - Chest pain [Unknown]

NARRATIVE: CASE EVENT DATE: 20140523
